FAERS Safety Report 6435787-X (Version None)
Quarter: 2009Q4

REPORT INFORMATION
  Report Type: 
  Country: None (occurrence: None)
  Receive Date: 20091111
  Receipt Date: 20091029
  Transmission Date: 20100525
  Serious: No
  Sender: FDA-Public Use
  Company Number: US-BAYER-200938008NA

PATIENT
  Age: 44 Year
  Sex: Female
  Weight: 72 kg

DRUGS (1)
  1. MAGNEVIST [Suspect]
     Indication: ANGIOGRAM
     Dosage: TOTAL DAILY DOSE: 30 ML  UNIT DOSE: 20 ML
     Route: 042
     Dates: start: 20091027, end: 20091027

REACTIONS (4)
  - BLOOD PRESSURE INCREASED [None]
  - CHEST PAIN [None]
  - HYPOAESTHESIA ORAL [None]
  - SWOLLEN TONGUE [None]
